FAERS Safety Report 7979916-5 (Version None)
Quarter: 2011Q4

REPORT INFORMATION
  Report Type: 
  Country: None (occurrence: None)
  Receive Date: 20111214
  Receipt Date: 20111202
  Transmission Date: 20120403
  Serious: Yes (Hospitalization)
  Sender: FDA-Public Use
  Company Number: US-ROCHE-GNE321118

PATIENT
  Age: 12 Month
  Sex: Male

DRUGS (1)
  1. OMALIZUMAB [Suspect]
     Indication: ASTHMA
     Dosage: UNK
     Route: 064

REACTIONS (3)
  - EAR INFECTION [None]
  - FAILURE TO THRIVE [None]
  - MATERNAL EXPOSURE TIMING UNSPECIFIED [None]
